FAERS Safety Report 17318347 (Version 3)
Quarter: 2020Q1

REPORT INFORMATION
  Report Type: Spontaneous
  Country: ES (occurrence: ES)
  Receive Date: 20200124
  Receipt Date: 20200316
  Transmission Date: 20200409
  Serious: Yes (Life-Threatening, Hospitalization, Other)
  Sender: FDA-Public Use
  Company Number: ES-ASTRAZENECA-2020SE08877

PATIENT
  Age: 64 Year
  Sex: Female
  Weight: 62 kg

DRUGS (4)
  1. OLAPARIB. [Suspect]
     Active Substance: OLAPARIB
     Indication: GENE MUTATION
     Route: 048
     Dates: start: 20180521, end: 20190328
  2. OMEPRAZOL [Concomitant]
     Active Substance: OMEPRAZOLE
     Route: 048
  3. SIMVASTATIN. [Concomitant]
     Active Substance: SIMVASTATIN
  4. PALIPERIDONE RETARD [Concomitant]
     Route: 048

REACTIONS (3)
  - Malignant neoplasm progression [Unknown]
  - Myelodysplastic syndrome [Not Recovered/Not Resolved]
  - Pancytopenia [Unknown]

NARRATIVE: CASE EVENT DATE: 20200102
